FAERS Safety Report 8990112 (Version 1)
Quarter: 2012Q4

REPORT INFORMATION
  Report Type: 
  Country: US (occurrence: US)
  Receive Date: 20121228
  Receipt Date: 20121228
  Transmission Date: 20130627
  Serious: Yes (Other)
  Sender: FDA-Public Use
  Company Number: US-FRI-1000041262

PATIENT
  Sex: Male

DRUGS (2)
  1. BYSTOLIC [Suspect]
     Dosage: 5 mg
     Route: 048
  2. BYSTOLIC [Suspect]
     Dosage: 10 mg
     Route: 048
     Dates: start: 201211

REACTIONS (1)
  - Heart rate decreased [Unknown]
